FAERS Safety Report 22097265 (Version 1)
Quarter: 2023Q1

REPORT INFORMATION
  Report Type: Report from Study
  Country: CA (occurrence: CA)
  Receive Date: 20230315
  Receipt Date: 20230315
  Transmission Date: 20230417
  Serious: Yes (Other)
  Sender: FDA-Public Use
  Company Number: CA-TAKEDA-2023TUS024732

PATIENT
  Age: 76 Year
  Sex: Female
  Weight: 81.6 kg

DRUGS (2)
  1. HUMAN IMMUNOGLOBULIN G [Suspect]
     Active Substance: HUMAN IMMUNOGLOBULIN G
     Indication: Immunodeficiency common variable
     Dosage: 10 GRAM, 1/WEEK
     Route: 058
  2. HUMAN IMMUNOGLOBULIN G [Suspect]
     Active Substance: HUMAN IMMUNOGLOBULIN G
     Indication: Bronchiectasis

REACTIONS (11)
  - Renal impairment [Unknown]
  - Lower respiratory tract infection [Recovered/Resolved]
  - Sinusitis [Recovered/Resolved]
  - Sleep disorder [Unknown]
  - Rhinitis [Unknown]
  - Viral infection [Unknown]
  - Illness [Unknown]
  - Bone density decreased [Unknown]
  - Cough [Unknown]
  - Pyrexia [Recovered/Resolved]
  - Arthralgia [Unknown]
